FAERS Safety Report 21230202 (Version 2)
Quarter: 2023Q1

REPORT INFORMATION
  Report Type: Spontaneous
  Country: US (occurrence: US)
  Receive Date: 20220818
  Receipt Date: 20230214
  Transmission Date: 20230417
  Serious: Yes (Other)
  Sender: FDA-Public Use
  Company Number: US-AMERICAN REGENT INC-2022002361

PATIENT
  Age: 17 Year
  Sex: Female
  Weight: 103 kg

DRUGS (17)
  1. VASOPRESSIN [Suspect]
     Active Substance: VASOPRESSIN
     Indication: Hypotension
     Dosage: UNK
     Route: 065
     Dates: start: 20210718, end: 20210727
  2. VASOPRESSIN [Suspect]
     Active Substance: VASOPRESSIN
     Indication: Circulatory collapse
  3. EPINEPHRINE [Suspect]
     Active Substance: EPINEPHRINE
     Indication: Hypotension
     Dosage: UNK
     Route: 065
     Dates: start: 20210717, end: 20210725
  4. EPINEPHRINE [Suspect]
     Active Substance: EPINEPHRINE
     Indication: Circulatory collapse
  5. NOREPINEPHRINE [Suspect]
     Active Substance: NOREPINEPHRINE
     Indication: Hypotension
     Dosage: UNK
     Route: 065
     Dates: start: 20210717, end: 20210728
  6. NOREPINEPHRINE [Suspect]
     Active Substance: NOREPINEPHRINE
     Indication: Circulatory collapse
  7. CALCIUM [Suspect]
     Active Substance: CALCIUM
     Indication: Hypotension
     Dosage: UNK
     Route: 042
     Dates: start: 20210717, end: 202107
  8. INSULIN NOS [Suspect]
     Active Substance: INSULIN NOS
     Indication: Hypotension
     Dosage: 0.1 U/KG/H
     Route: 042
     Dates: start: 20210717, end: 202107
  9. GLUCAGON [Suspect]
     Active Substance: GLUCAGON
     Indication: Hypotension
     Dosage: UNK
     Route: 042
     Dates: start: 20210717, end: 202107
  10. SODIUM BICARBONATE [Suspect]
     Active Substance: SODIUM BICARBONATE
     Indication: Hypotension
     Dosage: UNK
     Route: 042
     Dates: start: 20210717, end: 202107
  11. FAT EMULSION NOS [Suspect]
     Active Substance: EGG PHOSPHOLIPIDS\SAFFLOWER OIL\SOYBEAN OIL
     Indication: Hypotension
     Dosage: UNK
     Route: 065
     Dates: start: 20210718, end: 20210718
  12. METHYLENE BLUE [Suspect]
     Active Substance: METHYLENE BLUE
     Indication: Hypotension
     Dosage: UNK
     Route: 065
     Dates: start: 20210719, end: 20210719
  13. ACETAMINOPHEN [Concomitant]
     Active Substance: ACETAMINOPHEN
     Indication: Product used for unknown indication
     Dosage: UNK
     Route: 048
     Dates: start: 20210717, end: 20210717
  14. IBUPROFEN [Concomitant]
     Active Substance: IBUPROFEN
     Indication: Product used for unknown indication
     Dosage: UNK
     Route: 048
     Dates: start: 20210717, end: 20210717
  15. AMOXICILLIN [Concomitant]
     Active Substance: AMOXICILLIN
     Indication: Product used for unknown indication
     Dosage: UNK
     Route: 048
     Dates: start: 20210717, end: 20210717
  16. AMLODIPINE [Concomitant]
     Active Substance: AMLODIPINE BESYLATE
     Indication: Product used for unknown indication
     Dosage: AN ESTIMATED 500 TO 550 MG
     Route: 048
     Dates: start: 20210717, end: 20210717
  17. HEPARIN [Concomitant]
     Active Substance: HEPARIN SODIUM
     Indication: Anticoagulant therapy
     Dosage: UNK
     Route: 065

REACTIONS (6)
  - Drug ineffective [Recovered/Resolved]
  - Circulatory collapse [Recovered/Resolved]
  - Hypervolaemia [Recovered/Resolved]
  - Skin laceration [Recovered/Resolved]
  - Product use in unapproved indication [Unknown]
  - Product use issue [Unknown]

NARRATIVE: CASE EVENT DATE: 20210701
